FAERS Safety Report 10526878 (Version 2)
Quarter: 2014Q4

REPORT INFORMATION
  Report Type: Spontaneous
  Country: FR (occurrence: FR)
  Receive Date: 20141020
  Receipt Date: 20141126
  Transmission Date: 20150528
  Serious: Yes (Other)
  Sender: FDA-Public Use
  Company Number: FR-ROCHE-1476388

PATIENT
  Age: 84 Year
  Sex: Male
  Weight: 80 kg

DRUGS (1)
  1. LUCENTIS [Suspect]
     Active Substance: RANIBIZUMAB
     Indication: AGE-RELATED MACULAR DEGENERATION
     Dosage: SOLUTION IN SYRINGE
     Route: 050
     Dates: end: 20141013

REACTIONS (3)
  - Visual acuity reduced [Recovered/Resolved]
  - Wrong technique in drug usage process [Unknown]
  - Intraocular pressure increased [Recovering/Resolving]

NARRATIVE: CASE EVENT DATE: 20141013
